FAERS Safety Report 20803947 (Version 2)
Quarter: 2022Q2

REPORT INFORMATION
  Report Type: Report from Study
  Country: ES (occurrence: ES)
  Receive Date: 20220509
  Receipt Date: 20220517
  Transmission Date: 20220721
  Serious: Yes (Hospitalization)
  Sender: FDA-Public Use
  Company Number: ES-BRISTOL-MYERS SQUIBB COMPANY-BMS-2021-103494

PATIENT
  Age: 60 Year
  Sex: Male
  Weight: 69 kg

DRUGS (19)
  1. CARBOPLATIN [Suspect]
     Active Substance: CARBOPLATIN
     Indication: Non-small cell lung cancer
     Route: 042
     Dates: start: 20211006
  2. PACLITAXEL [Suspect]
     Active Substance: PACLITAXEL
     Indication: Non-small cell lung cancer
     Route: 042
     Dates: start: 20211006
  3. IPILIMUMAB [Suspect]
     Active Substance: IPILIMUMAB
     Indication: Non-small cell lung cancer
     Route: 042
     Dates: start: 20220121
  4. MORPHINE [Concomitant]
     Active Substance: MORPHINE
     Indication: Prophylaxis
     Dosage: EVERY 12 HOURS
     Route: 048
     Dates: start: 20210919, end: 20211209
  5. MORPHINE [Concomitant]
     Active Substance: MORPHINE
     Dosage: EVERY 12 HOURS?ONGOING
     Route: 048
     Dates: start: 20210919
  6. LACTULOSE [Concomitant]
     Active Substance: LACTULOSE
     Indication: Product used for unknown indication
     Dosage: 1 DF- 1 UNIT NOS?3 TIMES PER DAY?ONGOING
     Route: 048
     Dates: start: 20210917
  7. CALCIFEDIOL [Concomitant]
     Active Substance: CALCIFEDIOL
     Indication: Prophylaxis
     Dosage: EVERY 2 WEEKS; Q2S?ONGOING
     Route: 048
     Dates: start: 20210317
  8. FENTANYL [Concomitant]
     Active Substance: FENTANYL
     Indication: Prophylaxis
     Dosage: DAILY; PER DAY?ONGOING
     Route: 048
     Dates: start: 20210919
  9. TOZINAMERAN [Concomitant]
     Active Substance: TOZINAMERAN
     Indication: Prophylaxis
     Dosage: UNK
     Route: 030
     Dates: start: 20210504
  10. TOZINAMERAN [Concomitant]
     Active Substance: TOZINAMERAN
     Dosage: UNK
     Route: 030
     Dates: start: 20210711
  11. RANITIDINE [Concomitant]
     Active Substance: RANITIDINE
     Indication: Product used for unknown indication
     Route: 042
     Dates: start: 20211006, end: 20211006
  12. IBUPROFEN [Concomitant]
     Active Substance: IBUPROFEN
     Indication: Prophylaxis
     Dosage: 3 TIMES PER DAY
     Route: 048
     Dates: start: 20210909, end: 20211025
  13. OMEPRAZOLE [Concomitant]
     Active Substance: OMEPRAZOLE
     Indication: Prophylaxis
     Dosage: DAILY; PER DAY
     Route: 048
     Dates: start: 20210909, end: 20211124
  14. DEXAMETHASONE [Concomitant]
     Active Substance: DEXAMETHASONE
     Indication: Product used for unknown indication
     Route: 042
     Dates: start: 20211006, end: 20211006
  15. ONDANSETRON [Concomitant]
     Active Substance: ONDANSETRON
     Indication: Product used for unknown indication
     Route: 042
     Dates: start: 20211006, end: 20211006
  16. DEXCHLORPHENIRAMINE [Concomitant]
     Active Substance: DEXCHLORPHENIRAMINE
     Indication: Product used for unknown indication
     Route: 042
     Dates: start: 20211006, end: 20211006
  17. SENOSIDOS AB [Concomitant]
     Indication: Prophylaxis
     Dosage: 1 DF- 20 UNIT NOS?DAILY; PER DAY?ONGOING
     Route: 048
     Dates: start: 20210917
  18. PRAVASTATIN [Concomitant]
     Active Substance: PRAVASTATIN
     Indication: Prophylaxis
     Dosage: DAILY; PER DAY
     Route: 048
     Dates: start: 20210816, end: 20220111
  19. IPRATROPIUM BROMIDE [Concomitant]
     Active Substance: IPRATROPIUM BROMIDE
     Indication: Prophylaxis
     Dosage: DAILY; PER DAY?ONGOING
     Route: 048
     Dates: start: 20210920

REACTIONS (1)
  - Pain [Recovered/Resolved]

NARRATIVE: CASE EVENT DATE: 20211006
